FAERS Safety Report 4932128-1 (Version None)
Quarter: 2006Q1

REPORT INFORMATION
  Report Type: 
  Country: None (occurrence: None)
  Receive Date: 20060303
  Receipt Date: 20060215
  Transmission Date: 20060701
  Serious: Yes (Life-Threatening)
  Sender: FDA-Public Use
  Company Number: JP-ROCHE-437304

PATIENT
  Age: 23 Year
  Sex: Female
  Weight: 52 kg

DRUGS (5)
  1. TAMIFLU [Suspect]
     Route: 048
     Dates: start: 20060127, end: 20060129
  2. LOXONIN [Concomitant]
     Dosage: ORAL FORMULATION
     Route: 048
  3. PL [Concomitant]
     Route: 048
  4. COLDRIN [Concomitant]
     Dosage: ORAL FORMULATION
     Route: 048
  5. CODEINE PHOSPHATE [Concomitant]

REACTIONS (4)
  - DYSPNOEA [None]
  - RASH [None]
  - RASH GENERALISED [None]
  - URTICARIA [None]
